FAERS Safety Report 4613236-1 (Version None)
Quarter: 2005Q1

REPORT INFORMATION
  Report Type: 
  Country: None (occurrence: None)
  Receive Date: 20050315
  Receipt Date: 20050228
  Transmission Date: 20050727
  Serious: Yes (Other)
  Sender: FDA-Public Use
  Company Number: JP_050205940

PATIENT
  Age: 62 Year
  Sex: Female

DRUGS (1)
  1. EVISTA [Suspect]
     Indication: OSTEOPOROSIS
     Dosage: 60 MG/ 1 DAY
     Dates: start: 20040720, end: 20050207

REACTIONS (1)
  - VISUAL FIELD DEFECT [None]
